FAERS Safety Report 8259374-6 (Version None)
Quarter: 2012Q2

REPORT INFORMATION
  Report Type: 
  Country: None (occurrence: None)
  Receive Date: 20120404
  Receipt Date: 20120326
  Transmission Date: 20120825
  Serious: Yes (Hospitalization)
  Sender: FDA-Public Use
  Company Number: FR-ASTRAZENECA-2012SE21153

PATIENT
  Sex: Male

DRUGS (4)
  1. CRESTOR [Suspect]
     Route: 048
     Dates: start: 20120217
  2. PLAVIX [Suspect]
     Route: 048
     Dates: start: 20120217
  3. RAMIPRIL [Suspect]
     Route: 048
  4. PROCORALAN [Suspect]
     Route: 048
     Dates: start: 20120217

REACTIONS (3)
  - PERIPHERAL ARTERIAL OCCLUSIVE DISEASE [None]
  - FEMORAL ARTERIAL STENOSIS [None]
  - DEEP VEIN THROMBOSIS [None]
